FAERS Safety Report 8961547 (Version 1)
Quarter: 2012Q4

REPORT INFORMATION
  Report Type: 
  Country: US (occurrence: US)
  Receive Date: 20121213
  Receipt Date: 20121213
  Transmission Date: 20130627
  Serious: Yes (Hospitalization)
  Sender: FDA-Public Use
  Company Number: US-AMGEN-USASP2012078735

PATIENT
  Age: 50 Year
  Sex: Female
  Weight: 41.72 kg

DRUGS (13)
  1. VITAMIN D3 [Concomitant]
     Indication: VITAMIN SUPPLEMENTATION
     Dosage: UNK
  2. VITAMIN E                          /00110501/ [Concomitant]
     Indication: VITAMIN SUPPLEMENTATION
     Dosage: UNK
  3. FISH OIL [Concomitant]
     Indication: SUPPLEMENTATION THERAPY
     Dosage: UNK
  4. VITAMIN C                          /00008001/ [Concomitant]
     Indication: SUPPLEMENTATION THERAPY
     Dosage: UNK
  5. ENBREL [Suspect]
     Indication: RHEUMATOID ARTHRITIS
     Dosage: 25 mg, 2 times/wk
     Dates: start: 1997
  6. ENBREL [Suspect]
     Indication: JUVENILE ARTHRITIS
  7. HUMIRA [Concomitant]
     Indication: RHEUMATOID ARTHRITIS
     Dosage: UNK
     Dates: start: 2005, end: 2007
  8. PRENATAL VITAMINS                  /02014401/ [Concomitant]
     Indication: SUPPLEMENTATION THERAPY
     Dosage: UNK
  9. ACETONEL [Concomitant]
     Indication: OSTEOPOROSIS
     Dosage: UNK
  10. PROGESTERONE [Concomitant]
     Indication: HORMONE REPLACEMENT THERAPY
     Dosage: UNK
  11. ESTRIOL [Concomitant]
     Indication: HORMONE REPLACEMENT THERAPY
     Dosage: UNK
  12. CALCIUM                            /00060701/ [Concomitant]
     Indication: MINERAL SUPPLEMENTATION
     Dosage: UNK
  13. IRON [Concomitant]
     Indication: MINERAL SUPPLEMENTATION
     Dosage: UNK

REACTIONS (9)
  - Vitamin B12 decreased [Unknown]
  - Confusional state [Recovered/Resolved]
  - Oedema peripheral [Unknown]
  - Haemoglobin decreased [Unknown]
  - White blood cell count decreased [Unknown]
  - Viral infection [Unknown]
  - Red blood cell count decreased [Unknown]
  - Weight decreased [Unknown]
  - Drug ineffective [Unknown]
